FAERS Safety Report 10518204 (Version 7)
Quarter: 2016Q2

REPORT INFORMATION
  Report Type: Report from Study
  Country: US (occurrence: US)
  Receive Date: 20141015
  Receipt Date: 20160531
  Transmission Date: 20160815
  Serious: Yes (Hospitalization, Other)
  Sender: FDA-Public Use
  Company Number: US-AMGEN-USASP2014079192

PATIENT
  Age: 62 Year
  Sex: Male

DRUGS (5)
  1. FORTEO [Concomitant]
     Active Substance: TERIPARATIDE
     Indication: BONE DISORDER
     Dosage: UNK, 3 TIMES/WK
  2. FOSAMAX [Suspect]
     Active Substance: ALENDRONATE SODIUM
     Indication: PRODUCT USED FOR UNKNOWN INDICATION
     Dosage: UNK
     Route: 065
  3. FORTEO [Concomitant]
     Active Substance: TERIPARATIDE
     Indication: FEMUR FRACTURE
  4. ENBREL [Suspect]
     Active Substance: ETANERCEPT
     Indication: RHEUMATOID ARTHRITIS
     Dosage: 50 MG, WEEKLY
     Route: 065
     Dates: start: 20140115
  5. ENBREL [Suspect]
     Active Substance: ETANERCEPT
     Dosage: UNK
     Route: 065

REACTIONS (9)
  - Impaired healing [Not Recovered/Not Resolved]
  - Rheumatoid arthritis [Unknown]
  - Colitis [Unknown]
  - Lower limb fracture [Unknown]
  - Femur fracture [Not Recovered/Not Resolved]
  - Musculoskeletal disorder [Unknown]
  - Bone disorder [Not Recovered/Not Resolved]
  - Drug effect decreased [Unknown]
  - Bone operation [Unknown]

NARRATIVE: CASE EVENT DATE: 20140115
